FAERS Safety Report 25429288 (Version 1)
Quarter: 2025Q2

REPORT INFORMATION
  Report Type: Spontaneous
  Country: US (occurrence: US)
  Receive Date: 20250612
  Receipt Date: 20250612
  Transmission Date: 20250716
  Serious: No
  Sender: PIERRE FABRE MEDICAMENT
  Company Number: US-PFM-2025-00859

PATIENT
  Age: 0 Year
  Sex: Female
  Weight: 7.5 kg

DRUGS (1)
  1. HEMANGEOL [Suspect]
     Active Substance: PROPRANOLOL HYDROCHLORIDE
     Indication: Haemangioma
     Dosage: 0.4 ML, TID (3/DAY)
     Dates: start: 20241106, end: 20241115

REACTIONS (5)
  - Lethargy [Recovering/Resolving]
  - Hypotension [Recovering/Resolving]
  - Infantile spitting up [Recovering/Resolving]
  - Inappropriate schedule of product administration [Unknown]
  - Off label use [Unknown]

NARRATIVE: CASE EVENT DATE: 20241106
